FAERS Safety Report 9181287 (Version 2)
Quarter: 2013Q1

REPORT INFORMATION
  Report Type: Spontaneous
  Country: US (occurrence: US)
  Receive Date: 20130322
  Receipt Date: 20130322
  Transmission Date: 20140127
  Serious: No
  Sender: FDA-Public Use
  Company Number: US-MYLANLABS-2013S1001638

PATIENT
  Age: 50 Year
  Sex: Female
  Weight: 58.97 kg

DRUGS (3)
  1. EMSAM [Suspect]
     Indication: DEPRESSION
     Dosage: Q24HR
     Route: 062
     Dates: start: 201210
  2. GABAPENTIN [Concomitant]
     Indication: INSOMNIA
  3. ORAL CONTRACEPTIVE NOS [Concomitant]
     Indication: CONTRACEPTION

REACTIONS (2)
  - Application site erythema [Not Recovered/Not Resolved]
  - Application site pruritus [Not Recovered/Not Resolved]
